FAERS Safety Report 18671180 (Version 1)
Quarter: 2020Q4

REPORT INFORMATION
  Report Type: Spontaneous
  Country: GB (occurrence: GB)
  Receive Date: 20201228
  Receipt Date: 20201228
  Transmission Date: 20210114
  Serious: Yes (Disabling, Other)
  Sender: FDA-Public Use
  Company Number: GB-PFIZER INC-2020509397

PATIENT
  Age: 43 Year
  Sex: Male
  Weight: 134 kg

DRUGS (1)
  1. LYRICA [Suspect]
     Active Substance: PREGABALIN
     Indication: ANXIETY
     Dosage: 900
     Route: 048
     Dates: start: 20190301

REACTIONS (9)
  - Cardiac failure congestive [Not Recovered/Not Resolved]
  - Abnormal weight gain [Unknown]
  - Pain [Unknown]
  - Swelling [Unknown]
  - Dyspnoea [Unknown]
  - Cardiac output decreased [Unknown]
  - Depression [Unknown]
  - Drug withdrawal syndrome [Unknown]
  - Anxiety [Unknown]

NARRATIVE: CASE EVENT DATE: 20200201
